FAERS Safety Report 19783991 (Version 2)
Quarter: 2021Q3

REPORT INFORMATION
  Report Type: Other
  Country: US (occurrence: US)
  Receive Date: 20210903
  Receipt Date: 20210930
  Transmission Date: 20211014
  Serious: No
  Sender: FDA-Public Use
  Company Number: US-NEUROCRINE BIOSCIENCES INC.-2021NBI04682

PATIENT

DRUGS (7)
  1. ZOLOFT [Concomitant]
     Active Substance: SERTRALINE HYDROCHLORIDE
     Indication: DEPRESSION
     Dosage: 200 MILLIGRAM
     Route: 048
     Dates: start: 2019
  2. INGREZZA [Suspect]
     Active Substance: VALBENAZINE
     Indication: TARDIVE DYSKINESIA
     Dosage: 40 MILLIGRAM, QD
     Route: 048
     Dates: start: 20210727, end: 20210803
  3. SEROQUEL [Concomitant]
     Active Substance: QUETIAPINE FUMARATE
     Indication: PSYCHOTIC DISORDER
     Dosage: 300 MILLIGRAM, BID
     Route: 048
     Dates: start: 2019
  4. GABAPENTIN. [Concomitant]
     Active Substance: GABAPENTIN
     Indication: ANXIETY
     Dosage: 600 MILLIGRAM, BID
     Route: 048
     Dates: start: 2019
  5. DEPAKOTE [Concomitant]
     Active Substance: DIVALPROEX SODIUM
     Indication: MANIA
     Dosage: 250 MILLIGRAM, BID
     Route: 048
     Dates: start: 20210628, end: 20210720
  6. INGREZZA [Suspect]
     Active Substance: VALBENAZINE
     Dosage: 80 MILLIGRAM, QD
     Route: 048
     Dates: start: 20210804, end: 202108
  7. DAYVIGO [Concomitant]
     Active Substance: LEMBOREXANT
     Indication: SLEEP DISORDER
     Dosage: 10 MILLIGRAM
     Route: 048
     Dates: start: 202105, end: 20210910

REACTIONS (1)
  - Penis disorder [Recovered/Resolved]

NARRATIVE: CASE EVENT DATE: 202107
